FAERS Safety Report 10332088 (Version 1)
Quarter: 2014Q3

REPORT INFORMATION
  Report Type: Spontaneous
  Country: NL (occurrence: NL)
  Receive Date: 20140722
  Receipt Date: 20140722
  Transmission Date: 20150326
  Serious: Yes (Hospitalization)
  Sender: FDA-Public Use
  Company Number: NL-TEVA-494084ISR

PATIENT
  Age: 78 Year
  Sex: Male
  Weight: 71 kg

DRUGS (8)
  1. SOTALOL TABLET 40MG [Interacting]
     Active Substance: SOTALOL
     Indication: ATRIAL FIBRILLATION
     Dosage: 3 TIMES DAILY ONE PIECE
     Route: 048
     Dates: start: 20130417
  2. NIFEDIPINE TABLET MGA 20MG [Concomitant]
     Dosage: DOSE NOT FILLED INT
     Route: 048
  3. HYDROCHLOORTHIAZIDE TABLET 12,5MG [Concomitant]
     Active Substance: HYDROCHLOROTHIAZIDE
     Dosage: DOSE NOT FILLED IN
     Route: 048
  4. ACENOCOUMAROL TABLET 1MG [Concomitant]
     Active Substance: ACENOCOUMAROL
     Dosage: ACCORDING TO PRESCRIPTION THROMBOSIS SERVICE
     Route: 048
  5. SIMVASTATINE TABLET 10MG [Concomitant]
     Dosage: DOSE NOT FILLED IN
     Route: 048
  6. CLARITROMYCINE TABLET 500MG [Suspect]
     Active Substance: CLARITHROMYCIN
     Indication: HELICOBACTER INFECTION
     Dosage: TWICE DAILY ONE PIECE
     Route: 048
     Dates: start: 20140613
  7. METFORMIN [Interacting]
     Active Substance: METFORMIN HYDROCHLORIDE
     Indication: TYPE 2 DIABETES MELLITUS
     Dosage: TWICE DAILY ONE PIECE
     Route: 048
     Dates: start: 2006
  8. ENALAPRIL TABLET  5MG [Concomitant]
     Dosage: TWICE DAILY ONE PIECE
     Route: 048

REACTIONS (4)
  - Renal failure acute [Recovered/Resolved]
  - Bradycardia [Recovered/Resolved]
  - Malaise [Recovered/Resolved]
  - Drug interaction [Recovered/Resolved]

NARRATIVE: CASE EVENT DATE: 20140614
